FAERS Safety Report 24923174 (Version 1)
Quarter: 2025Q1

REPORT INFORMATION
  Report Type: Spontaneous
  Country: US (occurrence: US)
  Receive Date: 20250204
  Receipt Date: 20250204
  Transmission Date: 20250408
  Serious: No
  Sender: BRISTOL-MYERS SQUIBB COMPANY
  Company Number: US-BRISTOL-MYERS SQUIBB COMPANY-2025-016768

PATIENT
  Age: 54 Year
  Sex: Female
  Weight: 123.38 kg

DRUGS (1)
  1. REVLIMID [Suspect]
     Active Substance: LENALIDOMIDE
     Indication: Plasma cell myeloma
     Dosage: DOSE : 25 MG;     FREQ : ONCE A DAY FOR 14 DAYS ON, 7 DAYS OFF
     Route: 048

REACTIONS (2)
  - Product use complaint [Unknown]
  - Off label use [Unknown]
